FAERS Safety Report 14034921 (Version 1)
Quarter: 2017Q4

REPORT INFORMATION
  Report Type: Report from Study
  Country: RU (occurrence: RU)
  Receive Date: 20171003
  Receipt Date: 20171003
  Transmission Date: 20180321
  Serious: Yes (Death)
  Sender: FDA-Public Use
  Company Number: RU-ROCHE-2001517

PATIENT
  Age: 61 Year
  Sex: Female
  Weight: 75 kg

DRUGS (2)
  1. ALTEPLASE. [Suspect]
     Active Substance: ALTEPLASE
     Indication: ISCHAEMIC STROKE
     Route: 042
  2. ALTEPLASE. [Suspect]
     Active Substance: ALTEPLASE
     Indication: ARTERIAL THROMBOSIS

REACTIONS (2)
  - Anthrax [Fatal]
  - Haemorrhagic transformation stroke [Fatal]
